FAERS Safety Report 24928448 (Version 1)
Quarter: 2025Q1

REPORT INFORMATION
  Report Type: Spontaneous
  Country: US (occurrence: US)
  Receive Date: 20250205
  Receipt Date: 20250205
  Transmission Date: 20250409
  Serious: No
  Sender: Harrow Health
  Company Number: US-IMP-2025000093

PATIENT
  Sex: Female

DRUGS (1)
  1. VEVYE [Suspect]
     Active Substance: CYCLOSPORINE
     Indication: Dry eye
     Route: 047

REACTIONS (4)
  - Drug intolerance [Unknown]
  - Eye irritation [Unknown]
  - Ocular hyperaemia [Unknown]
  - Drug ineffective [Unknown]
